FAERS Safety Report 16229085 (Version 2)
Quarter: 2019Q2

REPORT INFORMATION
  Report Type: Report from Study
  Country: US (occurrence: US)
  Receive Date: 20190423
  Receipt Date: 20190510
  Transmission Date: 20190711
  Serious: Yes (Other)
  Sender: FDA-Public Use
  Company Number: US-GILEAD-2019-0403476

PATIENT
  Age: 15 Year
  Sex: Female

DRUGS (3)
  1. AZTREONAM LYSINE [Suspect]
     Active Substance: AZTREONAM LYSINE
     Indication: CYSTIC FIBROSIS
     Dosage: 75 MG, TID, 28 DAYS ON AND 28 DAYS OFF
     Route: 055
     Dates: start: 20180928
  2. ORKAMBI [Suspect]
     Active Substance: IVACAFTOR\LUMACAFTOR
     Indication: CYSTIC FIBROSIS
     Dosage: UNK
     Route: 065
  3. AZTREONAM LYSINE [Suspect]
     Active Substance: AZTREONAM LYSINE
     Dosage: 75 MG, TID, THREE TIMES A WEEK
     Route: 055
     Dates: start: 20180929

REACTIONS (7)
  - Cystic fibrosis [Not Recovered/Not Resolved]
  - Intentional product use issue [Not Recovered/Not Resolved]
  - Headache [Not Recovered/Not Resolved]
  - Abdominal pain upper [Not Recovered/Not Resolved]
  - Treatment noncompliance [Not Recovered/Not Resolved]
  - Weight increased [Not Recovered/Not Resolved]
  - Malnutrition [Not Recovered/Not Resolved]
